FAERS Safety Report 24410595 (Version 1)
Quarter: 2024Q4

REPORT INFORMATION
  Report Type: Other
  Country: US (occurrence: US)
  Receive Date: 20241008
  Receipt Date: 20241008
  Transmission Date: 20250115
  Serious: Yes (Hospitalization)
  Sender: WOODWARD PHARMA SERVICES
  Company Number: US-WW-2024-38559333

PATIENT
  Age: 62 Year
  Sex: Female

DRUGS (13)
  1. FLUCONAZOLE [Suspect]
     Active Substance: FLUCONAZOLE
     Indication: Oropharyngeal candidiasis
  2. SCOPOLAMINE [Suspect]
     Active Substance: SCOPOLAMINE
     Indication: Nausea
     Dosage: 1 MG/ 72 H
     Route: 062
  3. SULFAMETHOXAZOLE\TRIMETHOPRIM [Suspect]
     Active Substance: SULFAMETHOXAZOLE\TRIMETHOPRIM
     Indication: Antifungal prophylaxis
  4. LEVOFLOXACIN [Concomitant]
     Active Substance: LEVOFLOXACIN
     Indication: Pneumonia
  5. ALBUTEROL\IPRATROPIUM [Concomitant]
     Active Substance: ALBUTEROL\IPRATROPIUM
  6. BUDESONIDE [Concomitant]
     Active Substance: BUDESONIDE
  7. MONTELUKAST [Concomitant]
     Active Substance: MONTELUKAST
  8. GUAIFENESIN [Concomitant]
     Active Substance: GUAIFENESIN
  9. PREGABALIN [Concomitant]
     Active Substance: PREGABALIN
  10. bicetegravir/ emtricitabine/ tenofovir [Concomitant]
  11. POLYETHYLENE GLYCOL [Concomitant]
     Active Substance: POLYETHYLENE GLYCOL
  12. SENNOSIDES [Concomitant]
     Active Substance: SENNOSIDES
  13. HEPARIN [Concomitant]
     Active Substance: HEPARIN SODIUM
     Route: 058

REACTIONS (2)
  - Supraventricular tachycardia [Recovered/Resolved]
  - Labelled drug-drug interaction issue [Recovered/Resolved]
